FAERS Safety Report 10673384 (Version 2)
Quarter: 2015Q1

REPORT INFORMATION
  Report Type: Spontaneous
  Country: US (occurrence: US)
  Receive Date: 20141224
  Receipt Date: 20150320
  Transmission Date: 20150720
  Serious: No
  Sender: FDA-Public Use
  Company Number: US-BIOGENIDEC-2014BI136519

PATIENT
  Age: 45 Year
  Sex: Female

DRUGS (2)
  1. AVONEX [Suspect]
     Active Substance: INTERFERON BETA-1A
     Indication: MULTIPLE SCLEROSIS
     Route: 030
     Dates: start: 20141125, end: 20150128
  2. AVONEX [Suspect]
     Active Substance: INTERFERON BETA-1A
     Indication: MULTIPLE SCLEROSIS
     Route: 030
     Dates: start: 20121212, end: 20130801

REACTIONS (1)
  - Hemiplegia [Recovered/Resolved]

NARRATIVE: CASE EVENT DATE: 20141202
